FAERS Safety Report 6608614-5 (Version None)
Quarter: 2010Q1

REPORT INFORMATION
  Report Type: 
  Country: None (occurrence: None)
  Receive Date: 20100223
  Receipt Date: 20100216
  Transmission Date: 20100710
  Serious: Yes (Other)
  Sender: FDA-Public Use
  Company Number: 2010020039

PATIENT
  Sex: Male

DRUGS (2)
  1. SOMA [Suspect]
  2. OXYCONTIN [Suspect]

REACTIONS (2)
  - DRUG ABUSE [None]
  - DRUG DIVERSION [None]
